FAERS Safety Report 4727476-4 (Version None)
Quarter: 2005Q3

REPORT INFORMATION
  Report Type: 
  Country: None (occurrence: None)
  Receive Date: 20050728
  Receipt Date: 20050718
  Transmission Date: 20060218
  Serious: Yes (Other)
  Sender: FDA-Public Use
  Company Number: US-ROCHE-411151

PATIENT
  Age: 48 Year
  Sex: Female
  Weight: 66.2 kg

DRUGS (2)
  1. COPEGUS [Suspect]
     Indication: HEPATITIS C
     Route: 048
     Dates: start: 20041213
  2. PEG-INTRON REDIPEN [Suspect]
     Indication: HEPATITIS C
     Route: 058
     Dates: start: 20041213

REACTIONS (6)
  - BLOOD GLUCOSE INCREASED [None]
  - CARDIAC DISORDER [None]
  - DYSPNOEA [None]
  - HYPOAESTHESIA [None]
  - OEDEMA PERIPHERAL [None]
  - PRODUCTIVE COUGH [None]
